FAERS Safety Report 7910441-3 (Version None)
Quarter: 2011Q4

REPORT INFORMATION
  Report Type: 
  Country: None (occurrence: None)
  Receive Date: 20111111
  Receipt Date: 20111102
  Transmission Date: 20120403
  Serious: Yes (Hospitalization, Other)
  Sender: FDA-Public Use
  Company Number: US-ASTRAZENECA-2011SE51762

PATIENT
  Age: 61 Year
  Sex: Female

DRUGS (2)
  1. NEXIUM [Suspect]
     Route: 048
  2. PREVACID [Concomitant]
     Dosage: UNKNOWN DOSE TWICE DAILY

REACTIONS (9)
  - PAIN [None]
  - GASTROOESOPHAGEAL REFLUX DISEASE [None]
  - ARRHYTHMIA [None]
  - VOCAL CORD POLYP [None]
  - BARRETT'S OESOPHAGUS [None]
  - MOBILITY DECREASED [None]
  - CARDIAC PROCEDURE COMPLICATION [None]
  - HIATUS HERNIA [None]
  - PHARYNGEAL POLYP [None]
